FAERS Safety Report 7386671-9 (Version None)
Quarter: 2011Q1

REPORT INFORMATION
  Report Type: 
  Country: None (occurrence: None)
  Receive Date: 20110331
  Receipt Date: 20110324
  Transmission Date: 20110831
  Serious: Yes (Other)
  Sender: FDA-Public Use
  Company Number: FR-PFIZER INC-2011056487

PATIENT
  Age: 77 Year
  Sex: Female

DRUGS (5)
  1. STRONTIUM RANELATE [Concomitant]
     Indication: OSTEOPOROSIS
     Dosage: 2 G, DAILY
  2. VANCOMYCIN HCL [Suspect]
     Indication: STAPHYLOCOCCAL BACTERAEMIA
     Route: 042
  3. CANDESARTAN [Concomitant]
     Indication: HYPERTENSION
  4. PREDNISONE [Concomitant]
     Indication: POLYARTHRITIS
     Dosage: 3 MG/DAY
  5. TRIMETAZIDINE [Concomitant]
     Indication: CORONARY ARTERY INSUFFICIENCY

REACTIONS (1)
  - LINEAR IGA DISEASE [None]
